FAERS Safety Report 24083672 (Version 2)
Quarter: 2024Q3

REPORT INFORMATION
  Report Type: Spontaneous
  Country: GR (occurrence: GR)
  Receive Date: 20240712
  Receipt Date: 20240716
  Transmission Date: 20241017
  Serious: Yes (Disabling)
  Sender: MYLAN
  Company Number: GR-MYLANLABS-2024M1064005

PATIENT
  Age: 72 Year
  Sex: Male

DRUGS (1)
  1. ZOLOFT [Suspect]
     Active Substance: SERTRALINE HYDROCHLORIDE
     Indication: Product used for unknown indication
     Dosage: 50 MILLIGRAM, BID (ONE TABLET IN THE MORNING AND ONE TABLET AT NIGHT)
     Route: 048

REACTIONS (2)
  - Disorientation [Recovered/Resolved]
  - Feeling abnormal [Recovered/Resolved]
